FAERS Safety Report 10130153 (Version 1)
Quarter: 2014Q2

REPORT INFORMATION
  Report Type: Spontaneous
  Country: US (occurrence: None)
  Receive Date: 20140425
  Receipt Date: 20140425
  Transmission Date: 20141212
  Serious: Yes (Other)
  Sender: FDA-Public Use
  Company Number: None

PATIENT
  Age: 66 Year
  Sex: Female
  Weight: 56.25 kg

DRUGS (1)
  1. PROLIA AMGEN [Suspect]
     Indication: OSTEOPOROSIS
     Dosage: INJECTION, TWICE A YEAR, INTO THE MUSCLE
     Dates: start: 20131118

REACTIONS (13)
  - Muscle spasms [None]
  - Back pain [None]
  - Rash [None]
  - Disease recurrence [None]
  - Joint swelling [None]
  - Constipation [None]
  - Flatulence [None]
  - Dizziness [None]
  - Fatigue [None]
  - Vertigo [None]
  - Balance disorder [None]
  - Fall [None]
  - Wrist fracture [None]
